FAERS Safety Report 24247225 (Version 2)
Quarter: 2024Q3

REPORT INFORMATION
  Report Type: Spontaneous
  Country: PT (occurrence: PT)
  Receive Date: 20240826
  Receipt Date: 20240910
  Transmission Date: 20241016
  Serious: Yes (Hospitalization, Other)
  Sender: AUROBINDO
  Company Number: PT-MYLANLABS-2024M1066652

PATIENT
  Age: 87 Year
  Sex: Female

DRUGS (3)
  1. QUETIAPINE [Suspect]
     Active Substance: QUETIAPINE
     Indication: Dementia
     Dosage: 100 MILLIGRAM
     Route: 065
     Dates: start: 2023
  2. RANOLAZINE [Suspect]
     Active Substance: RANOLAZINE
     Indication: Hypertension
     Dosage: UNK
     Route: 048
  3. RANOLAZINE [Suspect]
     Active Substance: RANOLAZINE
     Indication: Left ventricular dysfunction

REACTIONS (14)
  - Syncope [Recovered/Resolved]
  - Urinary tract infection [Unknown]
  - Dehydration [Unknown]
  - Dementia [Unknown]
  - Amaurosis [Unknown]
  - Injury [Unknown]
  - Varicose vein [Unknown]
  - Visual impairment [Unknown]
  - Pathological fracture [Unknown]
  - Fall [Recovered/Resolved]
  - Orthostatic hypotension [Recovered/Resolved]
  - Product use in unapproved indication [Recovered/Resolved]
  - Self-medication [Unknown]
  - Off label use [Recovered/Resolved]
